FAERS Safety Report 9476583 (Version 1)
Quarter: 2013Q3

REPORT INFORMATION
  Report Type: Spontaneous
  Country: US (occurrence: None)
  Receive Date: 20130823
  Receipt Date: 20130823
  Transmission Date: 20140515
  Serious: Yes (Life-Threatening, Disabling, Other)
  Sender: FDA-Public Use
  Company Number: None

PATIENT
  Age: 47 Year
  Sex: Female
  Weight: 86.18 kg

DRUGS (1)
  1. LEVOFLOXACIN [Suspect]
     Indication: BRONCHITIS
     Dosage: 1 PILLS ONCE DAILY TAKEN BY MOUTH
     Route: 048
     Dates: start: 20111205, end: 20111214

REACTIONS (9)
  - Speech disorder [None]
  - Impaired driving ability [None]
  - Swollen tongue [None]
  - Gait disturbance [None]
  - Pain [None]
  - Hypoaesthesia [None]
  - Paraesthesia [None]
  - Hypersensitivity [None]
  - Vertigo [None]
